FAERS Safety Report 8146066-7 (Version None)
Quarter: 2012Q1

REPORT INFORMATION
  Report Type: 
  Country: None (occurrence: None)
  Receive Date: 20120217
  Receipt Date: 20110430
  Transmission Date: 20120608
  Serious: No
  Sender: FDA-Public Use
  Company Number: US-ABBOTT-11P-163-0722676-00

PATIENT
  Sex: Male
  Weight: 111.23 kg

DRUGS (2)
  1. SIMCOR [Suspect]
     Indication: HIGH DENSITY LIPOPROTEIN DECREASED
     Dosage: 500/20 AT BEDTIME
     Route: 048
     Dates: start: 20110301
  2. SIMCOR [Suspect]
     Indication: BLOOD TRIGLYCERIDES INCREASED

REACTIONS (3)
  - FLUSHING [None]
  - PARAESTHESIA [None]
  - BURNING SENSATION [None]
